FAERS Safety Report 7021904-X (Version None)
Quarter: 2010Q3

REPORT INFORMATION
  Report Type: 
  Country: None (occurrence: None)
  Receive Date: 20100930
  Receipt Date: 20100921
  Transmission Date: 20110219
  Serious: Yes (Hospitalization)
  Sender: FDA-Public Use
  Company Number: US-US-EMD SERONO, INC.-7018502

PATIENT
  Sex: Female
  Weight: 49 kg

DRUGS (5)
  1. REBIF [Suspect]
     Indication: MULTIPLE SCLEROSIS
     Route: 058
     Dates: start: 20100507
  2. SYNTHROID [Concomitant]
  3. EVISTA [Concomitant]
  4. TRAMADOL [Concomitant]
  5. GABAPENTIN [Concomitant]

REACTIONS (4)
  - CHOLECYSTITIS [None]
  - HEADACHE [None]
  - INJECTION SITE ERYTHEMA [None]
  - NAUSEA [None]
